FAERS Safety Report 15656664 (Version 2)
Quarter: 2018Q4

REPORT INFORMATION
  Report Type: Report from Study
  Country: JP (occurrence: JP)
  Receive Date: 20181126
  Receipt Date: 20181126
  Transmission Date: 20190205
  Serious: Yes (Hospitalization, Other)
  Sender: FDA-Public Use
  Company Number: JP-PFIZER INC-2018478287

PATIENT
  Age: 54 Year
  Sex: Female

DRUGS (2)
  1. METHOTREXATE SODIUM. [Suspect]
     Active Substance: METHOTREXATE SODIUM
     Indication: RHEUMATOID ARTHRITIS
  2. METHOTREXATE SODIUM. [Suspect]
     Active Substance: METHOTREXATE SODIUM
     Indication: SJOGREN^S SYNDROME
     Dosage: UNK

REACTIONS (6)
  - Ischaemic stroke [Recovering/Resolving]
  - Vomiting [Unknown]
  - Nausea [Unknown]
  - Ophthalmic herpes zoster [Recovering/Resolving]
  - Viral vasculitis [Recovering/Resolving]
  - Varicella zoster virus infection [Recovering/Resolving]
